FAERS Safety Report 23287071 (Version 5)
Quarter: 2025Q1

REPORT INFORMATION
  Report Type: Report from Study
  Country: US (occurrence: US)
  Receive Date: 20231212
  Receipt Date: 20250116
  Transmission Date: 20250409
  Serious: Yes (Hospitalization, Other)
  Sender: SANOFI AVENTIS
  Company Number: US-SA-SAC20231210000107

PATIENT
  Age: 61 Year
  Sex: Male

DRUGS (2)
  1. DUPILUMAB [Suspect]
     Active Substance: DUPILUMAB
     Indication: Dermatitis atopic
     Dosage: 300 MG, QOW
     Route: 058
     Dates: start: 20210101, end: 20250107
  2. DUPILUMAB [Suspect]
     Active Substance: DUPILUMAB
     Indication: Eczema

REACTIONS (9)
  - Seizure [Unknown]
  - Glioblastoma [Unknown]
  - Leukaemia [Unknown]
  - Brain neoplasm [Unknown]
  - Aura [Unknown]
  - Nausea [Unknown]
  - Asthenia [Unknown]
  - Hospice care [Unknown]
  - Dermatitis atopic [Unknown]

NARRATIVE: CASE EVENT DATE: 20220101
